FAERS Safety Report 6554644-1 (Version None)
Quarter: 2010Q1

REPORT INFORMATION
  Report Type: 
  Country: None (occurrence: None)
  Receive Date: 20100127
  Receipt Date: 20100120
  Transmission Date: 20100710
  Serious: Yes (Other)
  Sender: FDA-Public Use
  Company Number: GB-PFIZER INC-2009310979

PATIENT

DRUGS (1)
  1. PHENYTOIN SODIUM CAP [Suspect]
     Dosage: 50 MG, 6 TABLETS AT NIGHT

REACTIONS (1)
  - GASTROSTOMY TUBE INSERTION [None]
